FAERS Safety Report 11298236 (Version 1)
Quarter: 2015Q3

REPORT INFORMATION
  Report Type: Spontaneous
  Country: US (occurrence: US)
  Receive Date: 20150722
  Receipt Date: 20150722
  Transmission Date: 20151125
  Serious: Yes (Other)
  Sender: FDA-Public Use
  Company Number: US-ELI_LILLY_AND_COMPANY-US201106008631

PATIENT
  Age: 56 Year
  Sex: Female
  Weight: 113.38 kg

DRUGS (4)
  1. CEPHALEXIN. [Concomitant]
     Active Substance: CEPHALEXIN
     Dosage: 500 DF, TID
     Dates: start: 20110322
  2. NSAID^S [Concomitant]
     Active Substance: UNSPECIFIED INGREDIENT
  3. EVISTA [Suspect]
     Active Substance: RALOXIFENE HYDROCHLORIDE
     Indication: HORMONE THERAPY
     Dosage: UNK, UNKNOWN
     Route: 048
     Dates: start: 200912
  4. THYROID THERAPY [Concomitant]
     Active Substance: UNSPECIFIED INGREDIENT
     Dosage: 2 G, QD
     Dates: start: 2001

REACTIONS (1)
  - Vaginal haemorrhage [Recovered/Resolved]

NARRATIVE: CASE EVENT DATE: 201103
